FAERS Safety Report 4966469-9 (Version None)
Quarter: 2006Q2

REPORT INFORMATION
  Report Type: 
  Country: None (occurrence: None)
  Receive Date: 20060407
  Receipt Date: 20060329
  Transmission Date: 20061013
  Serious: Yes (Other)
  Sender: FDA-Public Use
  Company Number: PHEH2006US04152

PATIENT
  Age: 73 Year
  Sex: Male
  Weight: 63.038 kg

DRUGS (11)
  1. ZOMETA [Suspect]
     Indication: PROSTATE CANCER METASTATIC
     Dosage: 4 MG, QMO
     Dates: start: 20021024, end: 20041014
  2. WARFARIN SODIUM [Concomitant]
  3. NEURONTIN [Concomitant]
  4. LUPRON [Concomitant]
  5. PANTOPRAZOLE [Concomitant]
  6. GLIPIZIDE [Concomitant]
  7. ALLEGRA [Concomitant]
  8. DEXAMETHASONE TAB [Concomitant]
  9. TAXOTERE [Concomitant]
  10. TAMSULOSIN HYDROCHLORIDE [Concomitant]
  11. EMCYT [Concomitant]

REACTIONS (4)
  - EATING DISORDER [None]
  - ORAL PAIN [None]
  - OSTEONECROSIS [None]
  - WEIGHT DECREASED [None]
